FAERS Safety Report 8960143 (Version 1)
Quarter: 2012Q4

REPORT INFORMATION
  Report Type: Report from Study
  Country: CA (occurrence: CA)
  Receive Date: 20121211
  Receipt Date: 20121211
  Transmission Date: 20130627
  Serious: Yes (Hospitalization)
  Sender: FDA-Public Use
  Company Number: CA-TEVA-375281USA

PATIENT
  Age: 68 Year
  Sex: Male
  Weight: 101 kg

DRUGS (8)
  1. TREANDA [Suspect]
     Indication: NON-HODGKIN^S LYMPHOMA
     Route: 042
     Dates: start: 20111219
  2. METFORMIN HYDROCHLORIDE [Suspect]
     Indication: DIABETES MELLITUS
     Dates: start: 2009, end: 20120926
  3. ASAPHEN [Concomitant]
     Dates: start: 2008, end: 20120926
  4. ATORVASTATIN [Concomitant]
     Indication: DYSLIPIDAEMIA
     Dates: start: 2003, end: 20120926
  5. COZAAR [Concomitant]
     Indication: HYPERTENSION
     Dates: start: 2001, end: 20120926
  6. AMLODIPINE [Concomitant]
     Indication: HYPERTENSION
     Dates: start: 2001, end: 20120926
  7. ARTHROTEC [Concomitant]
     Indication: OSTEOARTHRITIS
     Dates: start: 2008, end: 20120926
  8. SANDOZ-MEDO PROPRIOL S.R. [Concomitant]
     Indication: HYPERTENSION
     Dates: start: 2011

REACTIONS (2)
  - Central nervous system lesion [Recovered/Resolved]
  - Hyperthermia [Recovered/Resolved]
